FAERS Safety Report 6142887-0 (Version None)
Quarter: 2009Q2

REPORT INFORMATION
  Report Type: 
  Country: None (occurrence: None)
  Receive Date: 20090403
  Receipt Date: 20090323
  Transmission Date: 20091009
  Serious: Yes (Other)
  Sender: FDA-Public Use
  Company Number: US-PFIZER INC-2006099302

PATIENT
  Sex: Female
  Weight: 53.5 kg

DRUGS (7)
  1. LYRICA [Suspect]
     Indication: NEURALGIA
     Dosage: 75 MG, 2X/DAY
     Dates: start: 20060803, end: 20060810
  2. NEURONTIN [Suspect]
     Indication: NEURALGIA
     Dosage: 300 MG, 2X/DAY
     Dates: start: 20060701
  3. NEURONTIN [Suspect]
     Indication: NERVE INJURY
  4. ULTRAM [Concomitant]
  5. VITAMINS [Concomitant]
  6. FLEXERIL [Concomitant]
  7. LORTAB [Concomitant]

REACTIONS (17)
  - ABDOMINAL PAIN UPPER [None]
  - AMENORRHOEA [None]
  - BREAST SWELLING [None]
  - DIZZINESS [None]
  - DRUG INEFFECTIVE [None]
  - DRY MOUTH [None]
  - DYSPNOEA [None]
  - FATIGUE [None]
  - HEADACHE [None]
  - MEMORY IMPAIRMENT [None]
  - MENSTRUAL DISORDER [None]
  - OEDEMA PERIPHERAL [None]
  - SINUS CONGESTION [None]
  - SINUS DISORDER [None]
  - SOMNOLENCE [None]
  - UNEVALUABLE EVENT [None]
  - VISION BLURRED [None]
